FAERS Safety Report 6105356-X (Version None)
Quarter: 2009Q1

REPORT INFORMATION
  Report Type: 
  Country: None (occurrence: None)
  Receive Date: 20090306
  Receipt Date: 20090224
  Transmission Date: 20090719
  Serious: Yes (Hospitalization, Other)
  Sender: FDA-Public Use
  Company Number: JP-PFIZER INC-2009175987

PATIENT

DRUGS (6)
  1. VFEND [Suspect]
     Indication: FEBRILE NEUTROPENIA
     Dosage: FREQUENCY: 2X/DAY,
     Route: 048
     Dates: start: 20081220, end: 20081223
  2. GASTER [Concomitant]
     Dosage: UNK
     Route: 048
     Dates: start: 20081112
  3. NEUQUINON [Concomitant]
     Dosage: UNK
     Route: 048
     Dates: start: 20081112
  4. BAKTAR [Concomitant]
     Dosage: UNK
     Route: 048
     Dates: start: 20081112
  5. CARBENIN [Concomitant]
     Dosage: 0.5 G, 2X/DAY
     Route: 042
     Dates: start: 20081216, end: 20081230
  6. ITRIZOLE [Concomitant]
     Indication: ORAL CANDIDIASIS
     Dosage: 50 MG, 3X/DAY
     Route: 048
     Dates: start: 20081130, end: 20081219

REACTIONS (2)
  - DISORIENTATION [None]
  - HALLUCINATION, VISUAL [None]
